FAERS Safety Report 6146893-1 (Version None)
Quarter: 2009Q2

REPORT INFORMATION
  Report Type: 
  Country: None (occurrence: None)
  Receive Date: 20090407
  Receipt Date: 20090330
  Transmission Date: 20091009
  Serious: Yes (Hospitalization)
  Sender: FDA-Public Use
  Company Number: JP-BRISTOL-MYERS SQUIBB COMPANY-14575369

PATIENT
  Age: 82 Year
  Sex: Female
  Weight: 38 kg

DRUGS (10)
  1. ERBITUX [Suspect]
     Indication: COLON CANCER
     Dosage: IST INF ON 20OCT08 520MG; 29OCT REDUCED TO 300MG; RECENT INF: ON 05-MAR-09.
     Route: 042
     Dates: start: 20081020, end: 20081020
  2. IRINOTECAN HCL [Concomitant]
     Indication: COLON CANCER
     Dosage: 20OCT08- 160MG; 11DEC08- 100MG; 08JAN TO 05MAR09- 60MG 1 IN 3 WK 56 DAYS;
     Route: 042
     Dates: start: 20081020, end: 20090305
  3. VENA [Concomitant]
     Indication: PREMEDICATION
     Dosage: 5 DF- 5 TABS
     Route: 048
     Dates: start: 20081020, end: 20090305
  4. DEXART [Concomitant]
     Indication: PREMEDICATION
     Route: 042
     Dates: start: 20081020, end: 20090305
  5. KYTRIL [Concomitant]
     Indication: ANTIEMETIC SUPPORTIVE CARE
     Dates: start: 20081020
  6. OLMETEC [Concomitant]
     Dosage: TABLET
     Route: 048
     Dates: start: 20070808, end: 20090309
  7. ALDACTONE [Concomitant]
     Dosage: TABLET
     Route: 048
     Dates: start: 20090129, end: 20090309
  8. BIOFERMIN [Concomitant]
     Dosage: 3 DF- 3 TABS
     Route: 048
     Dates: start: 20080616
  9. PARIET [Concomitant]
     Dosage: TABLET
     Route: 048
     Dates: start: 20080428
  10. LASIX [Concomitant]
     Dosage: TABLET
     Route: 048
     Dates: start: 20090205, end: 20090309

REACTIONS (3)
  - ANOREXIA [None]
  - DIARRHOEA [None]
  - MALAISE [None]
